FAERS Safety Report 23381803 (Version 1)
Quarter: 2024Q1

REPORT INFORMATION
  Report Type: Spontaneous
  Country: CH (occurrence: CH)
  Receive Date: 20240109
  Receipt Date: 20240109
  Transmission Date: 20240410
  Serious: Yes (Other)
  Sender: FDA-Public Use
  Company Number: None

PATIENT
  Age: 63 Year
  Sex: Female
  Weight: 87.1 kg

DRUGS (59)
  1. TORSEMIDE [Suspect]
     Active Substance: TORSEMIDE
     Indication: Product used for unknown indication
     Dosage: UNK
     Route: 065
     Dates: start: 20231028
  2. IBUPROFEN [Suspect]
     Active Substance: IBUPROFEN
     Indication: Product used for unknown indication
     Dosage: 400 MILLIGRAM
     Route: 065
     Dates: start: 20231103, end: 20231122
  3. ROCEPHIN [Suspect]
     Active Substance: CEFTRIAXONE SODIUM
     Indication: Product used for unknown indication
     Dosage: 2 GRAM
     Route: 042
     Dates: start: 20231109, end: 20231202
  4. KEFZOL [Suspect]
     Active Substance: CEFAZOLIN SODIUM
     Indication: Product used for unknown indication
     Dosage: 2 GRAM
     Route: 042
     Dates: start: 20231025, end: 20231026
  5. AMOXICILLIN\CLAVULANATE POTASSIUM [Suspect]
     Active Substance: AMOXICILLIN\CLAVULANATE POTASSIUM
     Indication: Product used for unknown indication
     Dosage: 2.2 GRAM
     Route: 042
     Dates: start: 20231107, end: 20231107
  6. AMOXICILLIN\CLAVULANATE POTASSIUM [Suspect]
     Active Substance: AMOXICILLIN\CLAVULANATE POTASSIUM
     Dosage: 8.8 GRAM
     Route: 042
     Dates: start: 20231108, end: 20231108
  7. AMOXICILLIN\CLAVULANATE POTASSIUM [Suspect]
     Active Substance: AMOXICILLIN\CLAVULANATE POTASSIUM
     Dosage: 6.6 GRAM
     Route: 042
     Dates: start: 20231109, end: 20231109
  8. VANCOCIN [Suspect]
     Active Substance: VANCOMYCIN HYDROCHLORIDE
     Indication: Product used for unknown indication
     Dosage: 500 MILLIGRAM
     Route: 042
     Dates: start: 20231107, end: 20231107
  9. VANCOCIN [Suspect]
     Active Substance: VANCOMYCIN HYDROCHLORIDE
     Dosage: 1000 MILLIGRAM
     Route: 042
     Dates: start: 20231108, end: 20231108
  10. VANCOCIN [Suspect]
     Active Substance: VANCOMYCIN HYDROCHLORIDE
     Dosage: 1500 MILLIGRAM
     Route: 042
     Dates: start: 20231121, end: 20231121
  11. AZTREONAM [Suspect]
     Active Substance: AZTREONAM
     Indication: Product used for unknown indication
     Dosage: UNK
     Route: 065
     Dates: start: 20231202
  12. DIFLUCAN [Suspect]
     Active Substance: FLUCONAZOLE
     Indication: Product used for unknown indication
     Dosage: 200 MILLIGRAM
     Route: 065
     Dates: start: 20231127, end: 20231127
  13. DIFLUCAN [Suspect]
     Active Substance: FLUCONAZOLE
     Dosage: 200 MILLIGRAM
     Route: 065
     Dates: start: 20231201, end: 20231201
  14. LASIX [Suspect]
     Active Substance: FUROSEMIDE
     Indication: Product used for unknown indication
     Dosage: 20 MG/ ML
     Route: 065
     Dates: start: 20231107, end: 20231116
  15. LASIX [Suspect]
     Active Substance: FUROSEMIDE
     Dosage: 20 MG/ ML
     Route: 065
     Dates: start: 20231122, end: 20231123
  16. DAFALGAN [Suspect]
     Active Substance: ACETAMINOPHEN
     Indication: Product used for unknown indication
     Dosage: UNK
     Route: 065
     Dates: start: 20231122, end: 20231205
  17. METAMIZOLE [Suspect]
     Active Substance: METAMIZOLE
     Indication: Product used for unknown indication
     Dosage: 500 MILLIGRAM
     Route: 065
     Dates: start: 20231025, end: 20231205
  18. ONDANSETRON [Suspect]
     Active Substance: ONDANSETRON
     Indication: Product used for unknown indication
     Dosage: AS NECESSARY
     Route: 048
     Dates: start: 20231027, end: 20231121
  19. ONDANSETRON [Suspect]
     Active Substance: ONDANSETRON
     Dosage: AS NECESSARY
     Dates: start: 20231025, end: 20231027
  20. ONDANSETRON [Suspect]
     Active Substance: ONDANSETRON
     Dosage: AS NECESSARY
     Route: 048
     Dates: start: 20231121
  21. FOLIC ACID [Concomitant]
     Active Substance: FOLIC ACID
     Dosage: 5 MILLIGRAM
     Route: 065
     Dates: start: 20231025
  22. CITALOPRAM HYDROBROMIDE [Concomitant]
     Active Substance: CITALOPRAM HYDROBROMIDE
     Dosage: 20 MILLIGRAM
     Route: 065
     Dates: start: 20231025
  23. NEBIVOLOL [Concomitant]
     Active Substance: NEBIVOLOL
     Dosage: 1.25 MILLIGRAM
     Route: 065
     Dates: start: 20231025
  24. VITAMIN D3 [Concomitant]
     Active Substance: CHOLECALCIFEROL
     Dosage: 800 INTERNATIONAL UNIT
     Route: 065
     Dates: start: 20231025
  25. XARELTO [Concomitant]
     Active Substance: RIVAROXABAN
     Indication: Thrombosis
     Dosage: 15 MILLIGRAM,
     Route: 065
     Dates: start: 2017, end: 20231025
  26. BURGERSTEIN ZINKGLUKONAT [Concomitant]
     Dosage: 30 MILLIGRAM,
     Route: 065
     Dates: start: 20231030
  27. FRESUBIN PROTEIN ENERGY [Concomitant]
     Dosage: 100 MILLILITER,
     Route: 065
     Dates: start: 20231030
  28. MINERALS\VITAMINS [Concomitant]
     Active Substance: MINERALS\VITAMINS
     Dosage: UNK
     Route: 065
     Dates: start: 20231030
  29. NALOXONE HYDROCHLORIDE\OXYCODONE HYDROCHLORIDE [Concomitant]
     Active Substance: NALOXONE HYDROCHLORIDE\OXYCODONE HYDROCHLORIDE
     Dosage: UNK
     Route: 065
     Dates: start: 20231026, end: 20231029
  30. NALOXONE HYDROCHLORIDE\OXYCODONE HYDROCHLORIDE [Concomitant]
     Active Substance: NALOXONE HYDROCHLORIDE\OXYCODONE HYDROCHLORIDE
     Dosage: UNK
     Route: 065
     Dates: start: 20231101
  31. PANTOPRAZOLE SODIUM [Concomitant]
     Active Substance: PANTOPRAZOLE SODIUM
     Dosage: 40 MILLIGRAM
     Route: 065
     Dates: start: 20231115
  32. PANTOPRAZOLE SODIUM [Concomitant]
     Active Substance: PANTOPRAZOLE SODIUM
     Dosage: AS NECESSARY
     Route: 065
     Dates: start: 20231114
  33. ENOXAPARIN SODIUM [Concomitant]
     Active Substance: ENOXAPARIN SODIUM
     Dosage: 40 MILLIGRAM
     Route: 065
     Dates: start: 20231026, end: 20231026
  34. ENOXAPARIN SODIUM [Concomitant]
     Active Substance: ENOXAPARIN SODIUM
     Dosage: 40 MILLIGRAM
     Route: 065
     Dates: start: 20231107
  35. ENOXAPARIN SODIUM [Concomitant]
     Active Substance: ENOXAPARIN SODIUM
     Dosage: 80 MILLIGRAM
     Route: 065
     Dates: start: 20231027, end: 20231027
  36. ENOXAPARIN SODIUM [Concomitant]
     Active Substance: ENOXAPARIN SODIUM
     Dosage: 80 MILLIGRAM
     Route: 065
     Dates: start: 20231104, end: 20231104
  37. ENOXAPARIN SODIUM [Concomitant]
     Active Substance: ENOXAPARIN SODIUM
     Dosage: 160 MILLIGRAM
     Route: 065
     Dates: start: 20231103, end: 20231103
  38. ENOXAPARIN SODIUM [Concomitant]
     Active Substance: ENOXAPARIN SODIUM
     Dosage: 60 MILLIGRAM
     Route: 065
     Dates: start: 20231109
  39. ENOXAPARIN SODIUM [Concomitant]
     Active Substance: ENOXAPARIN SODIUM
     Dosage: UNK
  40. OXYCODONE HYDROCHLORIDE [Concomitant]
     Active Substance: OXYCODONE HYDROCHLORIDE
     Dosage: AS NECESSARY
     Route: 065
     Dates: start: 20231025
  41. VALVERDE SCHLAF [Concomitant]
     Dosage: AS NECESSARY
     Route: 065
     Dates: start: 20231030
  42. QUETIAPINE FUMARATE [Concomitant]
     Active Substance: QUETIAPINE FUMARATE
     Dosage: AS NECESSARY
     Route: 065
     Dates: start: 20231031, end: 20231114
  43. REMERON [Concomitant]
     Active Substance: MIRTAZAPINE
     Dosage: AS NECESSARY
     Route: 065
     Dates: start: 20231114
  44. DROPERIDOL [Concomitant]
     Active Substance: DROPERIDOL
     Dosage: 1 MG/ 2ML ; AS NECESSARY
     Route: 065
     Dates: start: 20231025, end: 20231027
  45. DROPERIDOL [Concomitant]
     Active Substance: DROPERIDOL
     Dosage: 1 MG/ 2ML ; AS NECESSARY
     Route: 065
     Dates: start: 20231107
  46. DEXAMETHASONE [Concomitant]
     Active Substance: DEXAMETHASONE
     Dosage: 4 MG/ 1 ML ; AS NECESSARY
     Route: 065
     Dates: start: 20231025, end: 20231027
  47. DEXAMETHASONE [Concomitant]
     Active Substance: DEXAMETHASONE
     Dosage: 4 MG/ 1 ML ; AS NECESSARY
     Route: 065
     Dates: start: 20231121
  48. CLEMASTINE FUMARATE [Concomitant]
     Active Substance: CLEMASTINE FUMARATE
     Dosage: 2MG/ 2 ML ; AS NECESSARY
     Route: 065
     Dates: start: 20231130
  49. BULBOID [Concomitant]
     Dosage: AS NECESSARY
     Route: 065
     Dates: start: 20231027
  50. BISACODYL [Concomitant]
     Active Substance: BISACODYL
     Dosage: AS NECESSARY
     Route: 065
     Dates: start: 20231027
  51. CLYSSIE [Concomitant]
     Dosage: 120 MILLILITER,
     Route: 065
  52. DUPHALAC [Concomitant]
     Active Substance: LACTULOSE
     Dosage: 30 MILLILITER
     Route: 065
     Dates: start: 20231028, end: 20231029
  53. HEPARIN [Concomitant]
     Active Substance: HEPARIN SODIUM
     Dosage: 20000 E/ 48 ML
     Route: 065
     Dates: start: 20231025, end: 20231104
  54. METHOTREXATE [Concomitant]
     Active Substance: METHOTREXATE
     Indication: Rheumatoid arthritis
     Dosage: 17.5 MILLIGRAM
     Route: 065
     Dates: start: 20231030, end: 20231030
  55. HUMAN RED BLOOD CELL [Concomitant]
     Active Substance: HUMAN RED BLOOD CELL
     Dosage: UNK
     Route: 065
     Dates: start: 20231122, end: 20231123
  56. ACTIMARIS [Concomitant]
     Dosage: UNK
     Route: 065
     Dates: start: 20231101, end: 20231204
  57. SODIUM PICOSULFATE [Concomitant]
     Active Substance: SODIUM PICOSULFATE
     Dosage: 10 GTT DROPS,
     Route: 065
     Dates: start: 20231026, end: 20231204
  58. TRANSIPEG (PEG3350\ELECTROLYTES) [Concomitant]
     Active Substance: POLYETHYLENE GLYCOL 3350\POTASSIUM CHLORIDE\SODIUM BICARBONATE\SODIUM CHLORIDE\SODIUM SULFATE
     Dosage: UNK
     Route: 065
     Dates: start: 20231026, end: 20231204
  59. MULTILIND HEILPAST [Concomitant]
     Dosage: UNK
     Route: 065
     Dates: start: 20231127, end: 20231205

REACTIONS (3)
  - Eosinophilia [Unknown]
  - Rash maculo-papular [Not Recovered/Not Resolved]
  - Rash [Not Recovered/Not Resolved]

NARRATIVE: CASE EVENT DATE: 20231201
